FAERS Safety Report 17047945 (Version 1)
Quarter: 2019Q4

REPORT INFORMATION
  Report Type: Spontaneous
  Country: US (occurrence: US)
  Receive Date: 20191119
  Receipt Date: 20191119
  Transmission Date: 20200122
  Serious: No
  Sender: FDA-Public Use
  Company Number: US-IBSA PHARMA-TIR-2019-0708

PATIENT
  Age: 59 Year
  Sex: Female
  Weight: 56.75 kg

DRUGS (5)
  1. TIROSINT [Suspect]
     Active Substance: LEVOTHYROXINE SODIUM
     Indication: HYPOTHYROIDISM
     Dosage: 50MCG DAILY
     Route: 048
     Dates: start: 2017
  2. TIROSINT [Suspect]
     Active Substance: LEVOTHYROXINE SODIUM
     Dosage: ONE 50MCG AND ONE 13MCG CAPSULE DAILY
     Route: 048
     Dates: start: 201812
  3. TIROSINT [Suspect]
     Active Substance: LEVOTHYROXINE SODIUM
     Dosage: 50MCG ONCE DAILY
     Route: 048
     Dates: start: 201905
  4. TIROSINT [Suspect]
     Active Substance: LEVOTHYROXINE SODIUM
     Indication: HYPOTHYROIDISM
     Dosage: ONE 50MCG  AND ONE 13MCG  CAPSULE DAILY
     Route: 048
     Dates: start: 201812
  5. TIROSINT [Suspect]
     Active Substance: LEVOTHYROXINE SODIUM
     Indication: HYPOTHYROIDISM
     Dosage: 75MCG DAILY
     Route: 048
     Dates: start: 201905

REACTIONS (7)
  - Drug level above therapeutic [Unknown]
  - Diarrhoea [Unknown]
  - Drug level below therapeutic [Unknown]
  - Abdominal discomfort [Not Recovered/Not Resolved]
  - Muscle tightness [Unknown]
  - Blood test abnormal [Unknown]
  - Nervousness [Not Recovered/Not Resolved]

NARRATIVE: CASE EVENT DATE: 201812
